FAERS Safety Report 20225997 (Version 1)
Quarter: 2021Q4

REPORT INFORMATION
  Report Type: Spontaneous
  Country: GB (occurrence: GB)
  Receive Date: 20211224
  Receipt Date: 20211224
  Transmission Date: 20220303
  Serious: Yes (Other)
  Sender: FDA-Public Use
  Company Number: None

PATIENT
  Age: 56 Year
  Sex: Female
  Weight: 63 kg

DRUGS (7)
  1. HALOPERIDOL [Suspect]
     Active Substance: HALOPERIDOL
     Dosage: 1 DOSAGE FORMS DAILY; AT NIGHT. 1.5MG OR 500MCG TABLETS
     Route: 048
     Dates: start: 20211015, end: 20211117
  2. DULOXETINE [Concomitant]
     Active Substance: DULOXETINE
     Dosage: 2 DOSAGE FORMS DAILY;
     Dates: start: 20211015
  3. HERBALS\PLANTAGO OVATA SEED [Concomitant]
     Active Substance: HERBALS\PLANTAGO OVATA SEED
     Dosage: 7 MILLIGRAM DAILY; DISSOLVE IN WATER AFTER A MEAL
     Route: 048
     Dates: start: 20210916
  4. PREGABALIN [Concomitant]
     Active Substance: PREGABALIN
     Dosage: 1 DOSAGE FORMS DAILY; AT NIGHT. 150MG OR 300MG
     Route: 048
     Dates: start: 20210916, end: 20211015
  5. PREGABALIN [Concomitant]
     Active Substance: PREGABALIN
     Dosage: 1 DOSAGE FORMS DAILY; AT NIGHT. 150MG OR 300MG
     Dates: start: 20211118
  6. TRAMADOL [Concomitant]
     Active Substance: TRAMADOL
     Dosage: ONE-TWO  TABLETS 4 HOURLY, MAX EIGHT TABLETS  PER DAY
     Route: 048
     Dates: start: 20210923
  7. ZOPICLONE [Concomitant]
     Active Substance: ZOPICLONE
     Dosage: 1 OR 2 TABS AT NIGHT
     Route: 048
     Dates: start: 20210916

REACTIONS (2)
  - Pain in jaw [Recovered/Resolved]
  - Dystonia [Unknown]

NARRATIVE: CASE EVENT DATE: 20211206
